FAERS Safety Report 9490374 (Version 1)
Quarter: 2013Q3

REPORT INFORMATION
  Report Type: Spontaneous
  Country: JP (occurrence: JP)
  Receive Date: 20130830
  Receipt Date: 20130830
  Transmission Date: 20140515
  Serious: Yes (Other)
  Sender: FDA-Public Use
  Company Number: JP-009507513-1308JPN011060

PATIENT
  Sex: 0

DRUGS (1)
  1. DECADRON PHOSPHATE INJECTION [Suspect]
     Dosage: UNK
     Route: 051

REACTIONS (1)
  - Anaphylactic shock [Unknown]
